FAERS Safety Report 4911335-8 (Version None)
Quarter: 2006Q1

REPORT INFORMATION
  Report Type: 
  Country: None (occurrence: None)
  Receive Date: 20060113
  Receipt Date: 20051108
  Transmission Date: 20060701
  Serious: No
  Sender: FDA-Public Use
  Company Number: 2005SP003902

PATIENT
  Age: 91 Year
  Sex: Female
  Weight: 59.8748 kg

DRUGS (2)
  1. LUNESTA [Suspect]
     Indication: INSOMNIA
     Dosage: 1 MG;1X; ORAL
     Route: 048
     Dates: start: 20051104, end: 20051104
  2. TYLENOL [Concomitant]

REACTIONS (2)
  - ANXIETY [None]
  - PARADOXICAL DRUG REACTION [None]
